FAERS Safety Report 14203418 (Version 3)
Quarter: 2021Q3

REPORT INFORMATION
  Report Type: Spontaneous
  Country: US (occurrence: US)
  Receive Date: 20171120
  Receipt Date: 20210830
  Transmission Date: 20211014
  Serious: Yes (Hospitalization, Other)
  Sender: FDA-Public Use
  Company Number: US-ROCHE-2023814

PATIENT
  Age: 64 Year
  Sex: Female
  Weight: 57.66 kg

DRUGS (16)
  1. TAXOL [Concomitant]
     Active Substance: PACLITAXEL
     Indication: HER2 POSITIVE BREAST CANCER
     Route: 042
     Dates: start: 200410, end: 200505
  2. SELENIUM [Concomitant]
     Active Substance: SELENIUM
  3. CALCIUM [Concomitant]
     Active Substance: CALCIUM
  4. HERCEPTIN [Suspect]
     Active Substance: TRASTUZUMAB
     Indication: HER2 POSITIVE BREAST CANCER
     Route: 065
     Dates: start: 200410, end: 201305
  5. CARBOPLATIN. [Concomitant]
     Active Substance: CARBOPLATIN
     Indication: HER2 POSITIVE BREAST CANCER
     Route: 042
     Dates: start: 200410, end: 200505
  6. HERCEPTIN [Suspect]
     Active Substance: TRASTUZUMAB
     Indication: BREAST CANCER METASTATIC
     Route: 042
     Dates: start: 200410, end: 2012
  7. XELODA [Suspect]
     Active Substance: CAPECITABINE
     Route: 065
     Dates: start: 201301, end: 201302
  8. CHLORHEXIDINE [Concomitant]
     Active Substance: CHLORHEXIDINE
  9. KADCYLA [Suspect]
     Active Substance: ADO-TRASTUZUMAB EMTANSINE
     Indication: ADRENAL GLAND CANCER
  10. XELODA [Suspect]
     Active Substance: CAPECITABINE
     Indication: BREAST CANCER METASTATIC
     Route: 048
     Dates: start: 2012, end: 201305
  11. ZOMETA [Concomitant]
     Active Substance: ZOLEDRONIC ACID
     Indication: HER2 POSITIVE BREAST CANCER
     Dosage: GRADUALLY REDUCED TO ONCE EVERY 6 MONTHS, DECREASED FREQUENCY OVER TIME TO GET TO THAT DOSE
     Route: 042
     Dates: start: 200410, end: 2017
  12. ZOMETA [Concomitant]
     Active Substance: ZOLEDRONIC ACID
     Indication: METASTASES TO BONE
     Dosage: DECREASED FREQUENCY OVER TIME TO GET TO THAT DOSE
     Route: 042
     Dates: start: 2004, end: 2016
  13. TYKERB [Suspect]
     Active Substance: LAPATINIB DITOSYLATE
     Route: 048
     Dates: start: 201301, end: 201302
  14. CHLORCON [Concomitant]
  15. KADCYLA [Suspect]
     Active Substance: ADO-TRASTUZUMAB EMTANSINE
     Indication: HER2 POSITIVE BREAST CANCER
     Route: 042
     Dates: start: 201305
  16. TYKERB [Suspect]
     Active Substance: LAPATINIB DITOSYLATE
     Indication: BREAST CANCER METASTATIC
     Route: 048
     Dates: start: 2012, end: 201305

REACTIONS (9)
  - Metastases to adrenals [Recovered/Resolved]
  - Platelet count decreased [Unknown]
  - Blood bilirubin abnormal [Not Recovered/Not Resolved]
  - Blood potassium decreased [Recovered/Resolved]
  - Pancreatic cyst [Unknown]
  - Epistaxis [Recovered/Resolved]
  - Foot fracture [Recovered/Resolved]
  - Osteonecrosis of jaw [Not Recovered/Not Resolved]
  - Diarrhoea [Recovered/Resolved]

NARRATIVE: CASE EVENT DATE: 2012
